FAERS Safety Report 23109256 (Version 1)
Quarter: 2023Q4

REPORT INFORMATION
  Report Type: Spontaneous
  Country: US (occurrence: US)
  Receive Date: 20231026
  Receipt Date: 20231026
  Transmission Date: 20240109
  Serious: No
  Sender: FDA-Public Use
  Company Number: US-PERRIGO-23US006621

PATIENT
  Age: 79 Year
  Sex: Male

DRUGS (1)
  1. DOXYLAMINE SUCCINATE [Suspect]
     Active Substance: DOXYLAMINE SUCCINATE
     Indication: Sleep disorder
     Dosage: 12.5 MG, SINGLE
     Route: 048
     Dates: start: 20230416, end: 20230416

REACTIONS (3)
  - Somnolence [Recovered/Resolved]
  - Vertigo [Recovered/Resolved]
  - Incorrect dose administered [Unknown]

NARRATIVE: CASE EVENT DATE: 20230416
